FAERS Safety Report 9859844 (Version 1)
Quarter: 2014Q1

REPORT INFORMATION
  Report Type: Spontaneous
  Country: DE (occurrence: DE)
  Receive Date: 20140131
  Receipt Date: 20140131
  Transmission Date: 20141002
  Serious: Yes (Congenital Anomaly)
  Sender: FDA-Public Use
  Company Number: GXKR2014DE000675

PATIENT
  Age: 1 Day
  Sex: Female
  Weight: 3.9 kg

DRUGS (2)
  1. MIRTAZAPINE [Suspect]
     Indication: SLEEP DISORDER
     Dosage: 7.5 MG, QD
     Route: 064
  2. FOLIO [Concomitant]
     Indication: PROPHYLAXIS OF NEURAL TUBE DEFECT
     Dosage: 0.4 MG, QD
     Route: 064

REACTIONS (2)
  - Pulmonary valve stenosis congenital [Not Recovered/Not Resolved]
  - Atrial septal defect [Not Recovered/Not Resolved]
